FAERS Safety Report 11196220 (Version 1)
Quarter: 2015Q2

REPORT INFORMATION
  Report Type: Spontaneous
  Country: US (occurrence: None)
  Receive Date: 20150616
  Receipt Date: 20150616
  Transmission Date: 20150821
  Serious: Yes (Hospitalization)
  Sender: FDA-Public Use
  Company Number: None

PATIENT
  Age: 54 Year
  Sex: Male
  Weight: 89.9 kg

DRUGS (2)
  1. CLOPIDOGREL [Suspect]
     Active Substance: CLOPIDOGREL BISULFATE
     Indication: DEEP VEIN THROMBOSIS
     Route: 048
     Dates: start: 20150315, end: 20150320
  2. CLOPIDOGREL [Suspect]
     Active Substance: CLOPIDOGREL BISULFATE
     Indication: THROMBOSIS PROPHYLAXIS
     Route: 048
     Dates: start: 20150315, end: 20150320

REACTIONS (8)
  - Odynophagia [None]
  - Rash maculo-papular [None]
  - Pruritus [None]
  - Burning sensation [None]
  - Drug eruption [None]
  - Oesophageal candidiasis [None]
  - Erythema multiforme [None]
  - Oral candidiasis [None]

NARRATIVE: CASE EVENT DATE: 20150322
